FAERS Safety Report 7130675-8 (Version None)
Quarter: 2010Q4

REPORT INFORMATION
  Report Type: 
  Country: None (occurrence: None)
  Receive Date: 20101029
  Receipt Date: 20100804
  Transmission Date: 20110411
  Serious: Yes (Life-Threatening, Hospitalization)
  Sender: FDA-Public Use
  Company Number: US-003367

PATIENT
  Sex: Male
  Weight: 158 kg

DRUGS (15)
  1. DEGARELIX (480 MG, 240 MG, 480 MG) [Suspect]
     Indication: PROSTATE CANCER
     Dosage: SEE IMAGE
     Route: 058
     Dates: start: 20091026, end: 20091026
  2. DEGARELIX (480 MG, 240 MG, 480 MG) [Suspect]
     Indication: PROSTATE CANCER
     Dosage: SEE IMAGE
     Route: 058
     Dates: start: 20091123, end: 20100804
  3. DEGARELIX (480 MG, 240 MG, 480 MG) [Suspect]
     Indication: PROSTATE CANCER
     Dosage: SEE IMAGE
     Route: 058
     Dates: start: 20100818
  4. LIPITOR [Concomitant]
  5. ASIRIN [Concomitant]
  6. INDOMETHACIN [Concomitant]
  7. COLCHICINE [Concomitant]
  8. COUMADIN [Concomitant]
  9. BYSTOLIC [Concomitant]
  10. HYDROCHLOROTHIAZIDE [Concomitant]
  11. LOTREL [Concomitant]
  12. CORDARONE [Concomitant]
  13. PROLOSEC [Concomitant]
  14. VERSED [Concomitant]
  15. FENTANYL [Concomitant]

REACTIONS (6)
  - ANAEMIA [None]
  - DIZZINESS [None]
  - DRUG INTOLERANCE [None]
  - GASTRIC ULCER HAEMORRHAGE [None]
  - GOUT [None]
  - INTERNATIONAL NORMALISED RATIO INCREASED [None]
